FAERS Safety Report 11515135 (Version 1)
Quarter: 2015Q3

REPORT INFORMATION
  Report Type: Spontaneous
  Country: IN (occurrence: None)
  Receive Date: 20150916
  Receipt Date: 20150916
  Transmission Date: 20151125
  Serious: Yes (Life-Threatening, Hospitalization, Other)
  Sender: FDA-Public Use
  Company Number: IN-MDT-ADR-2015-01790

PATIENT
  Age: 29 Year
  Sex: Male

DRUGS (1)
  1. ORAL BACLOFEN [Suspect]
     Active Substance: BACLOFEN
     Indication: ALCOHOL USE
     Dosage: 280 MG/DAY

REACTIONS (8)
  - Suicide attempt [None]
  - Feeling guilty [None]
  - Respiratory distress [None]
  - Intentional overdose [None]
  - Blood pressure systolic decreased [None]
  - Depressed level of consciousness [None]
  - Hypotonia [None]
  - Alcoholism [None]
